FAERS Safety Report 10651264 (Version 5)
Quarter: 2015Q2

REPORT INFORMATION
  Report Type: Spontaneous
  Country: US (occurrence: US)
  Receive Date: 20141215
  Receipt Date: 20150410
  Transmission Date: 20150821
  Serious: Yes (Hospitalization)
  Sender: FDA-Public Use
  Company Number: US-UNITED THERAPEUTICS-UNT-2014-009525

PATIENT
  Age: 40 Year
  Sex: Female
  Weight: 65.31 kg

DRUGS (4)
  1. REMODULIN [Suspect]
     Active Substance: TREPROSTINIL
     Indication: PULMONARY HYPERTENSION
     Dosage: 0.052 ?G/KG, CONTINUING
     Route: 058
  2. REMODULIN [Suspect]
     Active Substance: TREPROSTINIL
     Dosage: 0.060 ?G/KG, CONTINUING
     Route: 058
  3. ADCIRCA [Concomitant]
     Active Substance: TADALAFIL
     Indication: PRODUCT USED FOR UNKNOWN INDICATION
  4. REMODULIN [Suspect]
     Active Substance: TREPROSTINIL
     Indication: COR PULMONALE CHRONIC
     Dosage: 0.028 ?G/KG, CONTINUING
     Route: 058
     Dates: start: 20140414

REACTIONS (12)
  - Device dislocation [Unknown]
  - Keloid scar [Unknown]
  - Infusion site oedema [Unknown]
  - Infusion site reaction [Unknown]
  - Infusion site pain [Unknown]
  - Right ventricular failure [Unknown]
  - Infusion site nodule [Unknown]
  - Systemic lupus erythematosus [Unknown]
  - Breast pain [Unknown]
  - Breast oedema [Unknown]
  - Lymphadenopathy [Unknown]
  - Infusion site pustule [Unknown]

NARRATIVE: CASE EVENT DATE: 2014
